FAERS Safety Report 11994431 (Version 1)
Quarter: 2016Q1

REPORT INFORMATION
  Report Type: Spontaneous
  Country: US (occurrence: US)
  Receive Date: 20160203
  Receipt Date: 20160203
  Transmission Date: 20160526
  Serious: No
  Sender: FDA-Public Use
  Company Number: US-UCBSA-2015032953

PATIENT
  Sex: Male
  Weight: 75.4 kg

DRUGS (1)
  1. KEPPRA [Suspect]
     Active Substance: LEVETIRACETAM
     Indication: SEIZURE
     Dosage: UNK
     Dates: start: 201402, end: 201410

REACTIONS (2)
  - Irritability [Recovering/Resolving]
  - Affective disorder [Recovered/Resolved]

NARRATIVE: CASE EVENT DATE: 2014
